FAERS Safety Report 6279667-1 (Version None)
Quarter: 2009Q3

REPORT INFORMATION
  Report Type: 
  Country: None (occurrence: None)
  Receive Date: 20090723
  Receipt Date: 20090713
  Transmission Date: 20100115
  Serious: Yes (Life-Threatening, Other)
  Sender: FDA-Public Use
  Company Number: JP-PFIZER INC-2009239433

PATIENT
  Age: 50 Year

DRUGS (7)
  1. PREDNISOLONE AND PREDNISOLONE STEAGLATE [Suspect]
     Indication: CARDIAC SARCOIDOSIS
  2. DISOPYRAMIDE AND DISOPYRAMIDE PHOSPHATE [Suspect]
     Indication: VENTRICULAR TACHYCARDIA
  3. VERAPAMIL HCL [Suspect]
  4. LIDOCAINE [Suspect]
     Indication: VENTRICULAR TACHYCARDIA
  5. NIFEKALANT HYDROCHLORIDE [Suspect]
     Indication: VENTRICULAR TACHYCARDIA
  6. SOTALOL [Suspect]
     Indication: VENTRICULAR TACHYCARDIA
  7. AMIODARONE [Suspect]
     Indication: VENTRICULAR TACHYCARDIA

REACTIONS (3)
  - CONDITION AGGRAVATED [None]
  - DRUG INEFFECTIVE [None]
  - VENTRICULAR TACHYCARDIA [None]
